FAERS Safety Report 20027377 (Version 7)
Quarter: 2022Q1

REPORT INFORMATION
  Report Type: Spontaneous
  Country: CA (occurrence: CA)
  Receive Date: 20211103
  Receipt Date: 20220308
  Transmission Date: 20220423
  Serious: Yes (Other)
  Sender: FDA-Public Use
  Company Number: CA-CELLTRION INC.-2021CA014746

PATIENT

DRUGS (8)
  1. INFLECTRA [Suspect]
     Active Substance: INFLIXIMAB-DYYB
     Indication: Colitis ulcerative
     Dosage: 400 MG, AT WEEK 2 AND 6 THEN EVERY 8 WEEKS (WEEK 0 DOSE IN HOSPITAL)
     Route: 042
     Dates: start: 20210920
  2. INFLECTRA [Suspect]
     Active Substance: INFLIXIMAB-DYYB
     Dosage: UNKNOWN DOSE- WEEK0 (RECEIVED IN HOSPITAL
     Route: 042
     Dates: start: 20210920, end: 20210920
  3. INFLECTRA [Suspect]
     Active Substance: INFLIXIMAB-DYYB
     Dosage: 400 MG, AT WEEK 2 AND 6 THEN EVERY 8 WEEKS (WEEK 0 DOSE IN HOSPITAL)
     Route: 042
     Dates: start: 20211005
  4. INFLECTRA [Suspect]
     Active Substance: INFLIXIMAB-DYYB
     Dosage: 400 MG, AT WEEK 2 AND 6 THEN EVERY 8 WEEKS (WEEK 0 DOSE IN HOSPITAL)
     Route: 042
     Dates: start: 20211103
  5. INFLECTRA [Suspect]
     Active Substance: INFLIXIMAB-DYYB
     Dosage: 400 MG, AT WEEK 2 AND 6 THEN EVERY 8 WEEKS (WEEK 0 DOSE IN HOSPITAL)
     Route: 042
     Dates: start: 20211229
  6. INFLECTRA [Suspect]
     Active Substance: INFLIXIMAB-DYYB
     Dosage: 400 MG, AT WEEK 2 AND 6 THEN EVERY 8 WEEKS (WEEK 0 DOSE IN HOSPITAL)
     Route: 042
     Dates: start: 20220223
  7. PENTASA [Concomitant]
     Active Substance: MESALAMINE
     Dosage: UNK
  8. PREDNISONE [Concomitant]
     Active Substance: PREDNISONE
     Dosage: 40 MG, UNKNOWN FREQUENCY
     Route: 065

REACTIONS (9)
  - Phlebitis infective [Unknown]
  - Haemorrhage [Not Recovered/Not Resolved]
  - Off label use [Unknown]
  - Heart rate increased [Not Recovered/Not Resolved]
  - Tachycardia [Not Recovered/Not Resolved]
  - Palpitations [Not Recovered/Not Resolved]
  - Weight increased [Unknown]
  - Hypertension [Unknown]
  - Condition aggravated [Not Recovered/Not Resolved]

NARRATIVE: CASE EVENT DATE: 20210101
